FAERS Safety Report 12759736 (Version 1)
Quarter: 2016Q3

REPORT INFORMATION
  Report Type: Spontaneous
  Country: JP (occurrence: JP)
  Receive Date: 20160919
  Receipt Date: 20160919
  Transmission Date: 20161109
  Serious: Yes (Hospitalization)
  Sender: FDA-Public Use
  Company Number: JP-TEVA-2016-JP-002027J

PATIENT
  Age: 6 Decade
  Sex: Female

DRUGS (11)
  1. DEZOLAM TABLET 1MG [Suspect]
     Active Substance: ETIZOLAM
     Dosage: 1.5 MILLIGRAM DAILY;
     Route: 065
  2. BROMAZEPAM [Suspect]
     Active Substance: BROMAZEPAM
     Route: 065
  3. OLANZAPINE TABLET 10MG TEVA [Suspect]
     Active Substance: OLANZAPINE
     Dosage: 5 MILLIGRAM DAILY;
     Route: 065
  4. ALPRAZOLAM. [Suspect]
     Active Substance: ALPRAZOLAM
     Route: 048
  5. ALPRAZOLAM. [Suspect]
     Active Substance: ALPRAZOLAM
     Route: 048
  6. LORAZEPAM. [Suspect]
     Active Substance: LORAZEPAM
     Dosage: 1.5 MILLIGRAM DAILY;
     Route: 048
  7. FLUVOXAMINE MALEATE TABLET 75MG TYK [Suspect]
     Active Substance: FLUVOXAMINE MALEATE
     Dosage: 75 MILLIGRAM DAILY;
     Route: 065
  8. DIAZEPAM. [Suspect]
     Active Substance: DIAZEPAM
     Dosage: 2 MILLIGRAM DAILY;
     Route: 065
  9. ETHYL LOFLAZEPATE [Suspect]
     Active Substance: ETHYL LOFLAZEPATE
     Route: 048
  10. MAPROTILINE HYDROCHLORIDE. [Suspect]
     Active Substance: MAPROTILINE HYDROCHLORIDE
     Dosage: 20 MILLIGRAM DAILY;
     Route: 065
  11. ALPRAZOLAM. [Suspect]
     Active Substance: ALPRAZOLAM
     Route: 048

REACTIONS (9)
  - Crying [None]
  - Abnormal behaviour [None]
  - Neoplasm [None]
  - Anxiety [None]
  - Alcohol poisoning [None]
  - Drug dependence [Unknown]
  - Gambling disorder [None]
  - Disinhibition [None]
  - Frustration tolerance decreased [None]
